FAERS Safety Report 9819178 (Version 2)
Quarter: 2014Q1

REPORT INFORMATION
  Report Type: Spontaneous
  Country: US (occurrence: US)
  Receive Date: 20140115
  Receipt Date: 20140205
  Transmission Date: 20141002
  Serious: Yes (Other)
  Sender: FDA-Public Use
  Company Number: US-PFIZER INC-2014010057

PATIENT
  Age: 71 Year
  Sex: Female
  Weight: 97.05 kg

DRUGS (2)
  1. LYRICA [Suspect]
     Indication: FACIAL NERVE DISORDER
     Dosage: 50 MG, 2X/DAY
     Dates: start: 201310, end: 201310
  2. LEVOTHYROXINE [Concomitant]
     Indication: THYROID DISORDER
     Dosage: 50 UG, DAILY

REACTIONS (3)
  - Renal disorder [Unknown]
  - Anger [Unknown]
  - Poor quality sleep [Unknown]
